FAERS Safety Report 5586917-3 (Version None)
Quarter: 2008Q1

REPORT INFORMATION
  Report Type: 
  Country: None (occurrence: None)
  Receive Date: 20080108
  Receipt Date: 20080108
  Transmission Date: 20080703
  Serious: Yes (Hospitalization)
  Sender: FDA-Public Use
  Company Number: None

PATIENT
  Age: 47 Year
  Sex: Female

DRUGS (4)
  1. GENTAMICIN [Suspect]
     Indication: OSTEOMYELITIS
  2. GENTAMICIN [Suspect]
     Indication: STAPHYLOCOCCAL INFECTION
  3. VANCOMYCIN [Suspect]
     Indication: OSTEOMYELITIS
  4. VANCOMYCIN [Suspect]
     Indication: STAPHYLOCOCCAL INFECTION

REACTIONS (5)
  - ATAXIA [None]
  - NAUSEA [None]
  - OTOTOXICITY [None]
  - TINNITUS [None]
  - VERTIGO [None]
